FAERS Safety Report 9241363 (Version 1)
Quarter: 2013Q1

REPORT INFORMATION
  Report Type: Spontaneous
  Country: US (occurrence: None)
  Receive Date: 20121113
  Receipt Date: 20121113
  Transmission Date: 20140127
  Serious: Yes (Other)
  Sender: FDA-Public Use
  Company Number: PHEH2011US07975

PATIENT
  Age: 64 Year
  Sex: Female
  Weight: 56.2 kg

DRUGS (3)
  1. TRILEPTAL (OXCARBAZEPINE) UNKNOWN [Suspect]
     Indication: CONVULSION
  2. DILANTIN (PHENYTOIN SODIUM) [Concomitant]
  3. VIMPAT (LACOSAMIDE) [Concomitant]

REACTIONS (4)
  - Ataxia [None]
  - Chest discomfort [None]
  - Dyspnoea [None]
  - Alopecia [None]
